FAERS Safety Report 21271836 (Version 1)
Quarter: 2022Q3

REPORT INFORMATION
  Report Type: Report from Study
  Country: RO (occurrence: RO)
  Receive Date: 20220830
  Receipt Date: 20220830
  Transmission Date: 20221026
  Serious: Yes (Hospitalization, Other)
  Sender: FDA-Public Use
  Company Number: RO-ABBVIE-22K-135-4519169-00

PATIENT
  Age: 55 Year
  Sex: Female

DRUGS (7)
  1. GLECAPREVIR\PIBRENTASVIR [Suspect]
     Active Substance: GLECAPREVIR\PIBRENTASVIR
     Indication: Chronic hepatitis C
     Dosage: 300 MG/120 MG
     Route: 048
     Dates: start: 20220415, end: 20220610
  2. MAGNESIUM ASPARTATE\POTASSIUM ASPARTATE [Concomitant]
     Active Substance: MAGNESIUM ASPARTATE\POTASSIUM ASPARTATE
     Indication: Cardiac disorder
     Route: 048
     Dates: start: 202207
  3. ELIQUIS [Concomitant]
     Active Substance: APIXABAN
     Indication: Cardiac disorder
     Route: 048
     Dates: start: 202207
  4. BISOPROLOL FUMARATE [Concomitant]
     Active Substance: BISOPROLOL FUMARATE
     Indication: Cardiac disorder
     Route: 048
     Dates: start: 202207
  5. BISOPROLOL FUMARATE [Concomitant]
     Active Substance: BISOPROLOL FUMARATE
     Indication: Blood pressure fluctuation
  6. LANSOPRAZOLE [Concomitant]
     Active Substance: LANSOPRAZOLE
     Indication: Gastric disorder
     Route: 048
     Dates: start: 202207
  7. TREHALOSE [Concomitant]
     Active Substance: TREHALOSE
     Indication: Glaucoma
     Route: 061
     Dates: start: 202112

REACTIONS (6)
  - Toe amputation [Recovering/Resolving]
  - Localised infection [Recovering/Resolving]
  - Pulmonary embolism [Recovering/Resolving]
  - Dizziness [Recovered/Resolved]
  - Nausea [Recovered/Resolved]
  - Headache [Recovered/Resolved]

NARRATIVE: CASE EVENT DATE: 20220417
